FAERS Safety Report 9908581 (Version 1)
Quarter: 2014Q1

REPORT INFORMATION
  Report Type: Spontaneous
  Country: US (occurrence: None)
  Receive Date: 20140214
  Receipt Date: 20140214
  Transmission Date: 20141002
  Serious: Yes (Hospitalization)
  Sender: FDA-Public Use
  Company Number: None

PATIENT
  Age: 78 Year
  Sex: Male
  Weight: 74.9 kg

DRUGS (10)
  1. KEPPRA [Suspect]
     Indication: CONVULSION
     Dosage: CHRONIC WITH RECENT INCREASE
     Route: 048
  2. PAXIL [Suspect]
     Indication: DEPRESSION
     Route: 048
  3. TRAZODONE [Suspect]
     Indication: INSOMNIA
     Dosage: 150MG QHS PRN INSOM
  4. ATIVAN [Suspect]
     Indication: ANXIETY
     Dosage: 0.5MG PO Q6HRS PRN
     Route: 048
  5. METOPROLOL [Concomitant]
  6. PRILOSEC [Concomitant]
  7. XARELTO [Concomitant]
  8. ASPIRIN [Concomitant]
  9. MEGACE [Concomitant]
  10. LISINOPRIL [Concomitant]

REACTIONS (3)
  - Hallucination, visual [None]
  - Delirium [None]
  - Incorrect dosage administered [None]
